FAERS Safety Report 7981366 (Version 6)
Quarter: 2013Q3

REPORT INFORMATION
  Report Type: Report from Study
  Country: US (occurrence: US)
  Receive Date: 20110608
  Receipt Date: 20130905
  Transmission Date: 20140515
  Serious: Yes (Life-Threatening)
  Sender: FDA-Public Use
  Company Number: US-UCBSA-034451

PATIENT
  Age: 70 Year
  Sex: Male
  Weight: 47.72 kg

DRUGS (29)
  1. CIMZIA [Suspect]
     Indication: CROHN^S DISEASE
     Dosage: NEXT DOSE RECEIVED ON 05-APR-2011; 400
     Route: 058
     Dates: start: 20110222
  2. MESALAMINE [Concomitant]
     Indication: CROHN^S DISEASE
     Dates: start: 19991203, end: 20040628
  3. MESALAMINE [Concomitant]
     Indication: CROHN^S DISEASE
     Route: 048
     Dates: start: 20040628
  4. CALCIUM WITH VITAMIN D [Concomitant]
     Indication: CROHN^S DISEASE
     Dosage: 800MG (CALCIUM); 200 U(VITAMIN D)
  5. CALCIUM WITH VITAMIN D [Concomitant]
     Indication: OSTEOPOROSIS
     Dosage: 800MG (CALCIUM); 200 U(VITAMIN D)
  6. OMEGA 3 [Concomitant]
     Indication: CROHN^S DISEASE
  7. OMEGA 3 [Concomitant]
     Indication: MEDICAL DIET
  8. MULTIVITAMINS [Concomitant]
     Indication: CROHN^S DISEASE
  9. MULTIVITAMINS [Concomitant]
     Indication: VITAMIN SUPPLEMENTATION
  10. BOOST [Concomitant]
     Indication: CROHN^S DISEASE
  11. DOXAZOSIN [Concomitant]
     Indication: BENIGN PROSTATIC HYPERPLASIA
     Route: 048
  12. ASA [Concomitant]
     Indication: CORONARY ARTERY DISEASE
     Route: 048
  13. NEXIUM [Concomitant]
     Indication: PEPTIC ULCER
     Route: 048
  14. TOPROL [Concomitant]
     Indication: TACHYCARDIA
     Route: 048
  15. BUDESONIDE [Concomitant]
     Indication: CROHN^S DISEASE
     Dates: start: 20090121
  16. DOXEPIN [Concomitant]
     Indication: DEPRESSION
     Route: 048
  17. ASPIRIN [Concomitant]
     Indication: CROHN^S DISEASE
  18. PREDNISONE [Concomitant]
     Indication: CROHN^S DISEASE
     Dates: start: 19991203, end: 20090609
  19. PREDNISONE [Concomitant]
     Indication: CROHN^S DISEASE
     Dates: start: 20100214
  20. POTASSIUM CITRATE [Concomitant]
     Indication: CROHN^S DISEASE
  21. FIORINAL [Concomitant]
     Indication: PAIN
     Dosage: 1 CAPSULE EVERY4-6 HOURS
     Route: 048
  22. VITAMIN B12 [Concomitant]
     Indication: ANAEMIA VITAMIN B12 DEFICIENCY
     Route: 030
  23. SPIRIVA [Concomitant]
     Indication: CHRONIC OBSTRUCTIVE PULMONARY DISEASE
     Dosage: INH 1 PUFF
  24. ADVAIR [Concomitant]
     Indication: CHRONIC OBSTRUCTIVE PULMONARY DISEASE
     Dosage: INH 250/50 MG, 1 PUFF
  25. FLUTICASONE [Concomitant]
     Indication: HYPERSENSITIVITY
     Dosage: 1 SPRAY EA NOSTRIL, BID
     Route: 045
  26. CLARITIN [Concomitant]
     Indication: HYPERSENSITIVITY
     Route: 048
  27. RECLAST [Concomitant]
     Indication: OSTEOPOROSIS
     Route: 042
  28. MVI [Concomitant]
     Indication: VITAMIN SUPPLEMENTATION
  29. TRIAMTERENE/HCTZ [Concomitant]
     Indication: OEDEMA

REACTIONS (1)
  - Bladder cancer recurrent [Not Recovered/Not Resolved]
